FAERS Safety Report 18105369 (Version 1)
Quarter: 2020Q3

REPORT INFORMATION
  Report Type: Spontaneous
  Country: US (occurrence: US)
  Receive Date: 20200803
  Receipt Date: 20200803
  Transmission Date: 20201103
  Serious: No
  Sender: FDA-Public Use
  Company Number: US-PFIZER INC-2020291400

PATIENT
  Age: 64 Year
  Sex: Female
  Weight: 86.18 kg

DRUGS (2)
  1. PREMARIN [Suspect]
     Active Substance: ESTROGENS, CONJUGATED
     Indication: MENOPAUSAL SYMPTOMS
     Dosage: 0.5 MG, 3 TIMES WEEKLY
     Route: 067
     Dates: start: 20200729
  2. PREMARIN [Suspect]
     Active Substance: ESTROGENS, CONJUGATED
     Indication: URINARY TRACT INFECTION

REACTIONS (10)
  - Abdominal pain upper [Recovering/Resolving]
  - Off label use [Unknown]
  - Headache [Unknown]
  - Muscle spasms [Recovering/Resolving]
  - Hyperhidrosis [Recovering/Resolving]
  - Bradyphrenia [Unknown]
  - Nausea [Unknown]
  - Dizziness [Recovering/Resolving]
  - Insomnia [Recovered/Resolved with Sequelae]
  - Foot deformity [Unknown]

NARRATIVE: CASE EVENT DATE: 20200729
